FAERS Safety Report 13463957 (Version 1)
Quarter: 2017Q2

REPORT INFORMATION
  Report Type: Spontaneous
  Country: US (occurrence: US)
  Receive Date: 20170420
  Receipt Date: 20170420
  Transmission Date: 20170830
  Serious: Yes (Other)
  Sender: FDA-Public Use
  Company Number: US-ROCHE-680575

PATIENT
  Age: 16 Year
  Sex: Male
  Weight: 54 kg

DRUGS (1)
  1. ACCUTANE [Suspect]
     Active Substance: ISOTRETINOIN
     Indication: ACNE
     Dosage: FREQUENCY: EVERY DAY
     Route: 048
     Dates: start: 200711, end: 200806

REACTIONS (1)
  - Aspartate aminotransferase increased [Unknown]

NARRATIVE: CASE EVENT DATE: 200712
